FAERS Safety Report 5738244-9 (Version None)
Quarter: 2008Q2

REPORT INFORMATION
  Report Type: 
  Country: None (occurrence: None)
  Receive Date: 20080514
  Receipt Date: 20071120
  Transmission Date: 20081010
  Serious: No
  Sender: FDA-Public Use
  Company Number: US-BOEHRINGER INGELHEIM GMBH, GERMANY-2006-BP-14978BP

PATIENT
  Sex: Male
  Weight: 100 kg

DRUGS (47)
  1. MIRAPEX [Suspect]
     Indication: PARKINSON'S DISEASE
     Route: 048
     Dates: start: 20030122, end: 20041228
  2. PARCOPA [Concomitant]
  3. COMTAN [Concomitant]
     Indication: PARKINSON'S DISEASE
  4. ACETAMINOPHEN AND HYDROCODONE BITARTRATE [Concomitant]
     Indication: PAIN
  5. DARVOCET [Concomitant]
  6. CELEXA [Concomitant]
  7. PROZAC [Concomitant]
     Indication: DEPRESSION
  8. NAPROXEN [Concomitant]
  9. METHOCARBAMOL [Concomitant]
  10. NABUMETONE [Concomitant]
  11. OXYCODONE HCL [Concomitant]
  12. BUSPAR [Concomitant]
  13. ANAFRANIL [Concomitant]
  14. AMITRIPTYLINE HCL [Concomitant]
  15. CEPHALEXIN [Concomitant]
  16. SINEMET [Concomitant]
  17. MENTAX [Concomitant]
     Indication: TINEA CRURIS
  18. MEDROL [Concomitant]
  19. TESTIM [Concomitant]
     Indication: HYPOGONADISM
  20. PHENERGAN [Concomitant]
  21. LEVITRA [Concomitant]
  22. LORTAB [Concomitant]
  23. ULTRACET [Concomitant]
  24. LASIX [Concomitant]
  25. PERCODAN-DEMI [Concomitant]
  26. ULTRAM [Concomitant]
  27. SOMA [Concomitant]
  28. WELLBUTRIN [Concomitant]
  29. LEXAPRO [Concomitant]
  30. AMOXIL [Concomitant]
  31. COQ10 [Concomitant]
  32. GUAIFED [Concomitant]
  33. STERAPRED [Concomitant]
  34. VIOXX [Concomitant]
  35. OXYCONTIN [Concomitant]
  36. BIAXIN [Concomitant]
     Indication: SINUSITIS
  37. ZEPHREX [Concomitant]
     Indication: SINUSITIS
  38. VITAMIN E [Concomitant]
  39. M.V.I. [Concomitant]
  40. CALCIUM [Concomitant]
  41. DURAGESIC-100 [Concomitant]
  42. FLEXERIL [Concomitant]
  43. NEURONTIN [Concomitant]
  44. ZANAFLEX [Concomitant]
  45. COLACE [Concomitant]
  46. ACIFED [Concomitant]
     Indication: RHINITIS ALLERGIC
  47. BENEDRYL [Concomitant]
     Indication: RHINITIS ALLERGIC

REACTIONS (9)
  - ANXIETY [None]
  - DECREASED INTEREST [None]
  - DIZZINESS [None]
  - EMOTIONAL DISTRESS [None]
  - FEAR [None]
  - OBSESSIVE-COMPULSIVE DISORDER [None]
  - PAIN [None]
  - PATHOLOGICAL GAMBLING [None]
  - SOMNOLENCE [None]
